FAERS Safety Report 4833387-6 (Version None)
Quarter: 2005Q4

REPORT INFORMATION
  Report Type: 
  Country: None (occurrence: None)
  Receive Date: 20051117
  Receipt Date: 20051031
  Transmission Date: 20060501
  Serious: Yes (Hospitalization, Other)
  Sender: FDA-Public Use
  Company Number: 6018278

PATIENT
  Age: 39 Year
  Sex: Female

DRUGS (3)
  1. LEVOTHYROXINE SODIUM [Suspect]
     Indication: HYPOTHYROIDISM
     Dosage: 125 MCG (125 MCG, 1D), ORAL
     Route: 048
  2. XANAX [Suspect]
     Dosage: 750 MCG (750 MCG, 1 D), ORAL
     Route: 048
     Dates: end: 20050607
  3. IMOVANE                  (ZOPICLONE) [Suspect]
     Dosage: 7.5 MG (7,5 MG, 1 D), ORAL
     Route: 048
     Dates: end: 20050607

REACTIONS (4)
  - DELIRIUM [None]
  - HALLUCINATIONS, MIXED [None]
  - MANIA [None]
  - PSYCHOMOTOR HYPERACTIVITY [None]
